FAERS Safety Report 9052946 (Version 1)
Quarter: 2013Q1

REPORT INFORMATION
  Report Type: Spontaneous
  Country: BR (occurrence: BR)
  Receive Date: 20130208
  Receipt Date: 20130208
  Transmission Date: 20140127
  Serious: Yes (Hospitalization, Other)
  Sender: FDA-Public Use
  Company Number: BR-ABBOTT-13P-020-1044909-00

PATIENT
  Sex: Male

DRUGS (3)
  1. CYCLOSPORINE [Suspect]
     Indication: MATERNAL EXPOSURE TIMING UNSPECIFIED
     Route: 064
  2. LEVOTHYROXINE [Suspect]
     Indication: MATERNAL EXPOSURE TIMING UNSPECIFIED
     Route: 064
  3. BETAMETHASONE [Concomitant]
     Indication: LUNG DISORDER

REACTIONS (4)
  - Foetal growth restriction [Unknown]
  - Premature baby [Unknown]
  - Foetal distress syndrome [Recovered/Resolved]
  - Foetal exposure during pregnancy [Unknown]
